FAERS Safety Report 13534957 (Version 2)
Quarter: 2017Q2

REPORT INFORMATION
  Report Type: Spontaneous
  Country: US (occurrence: US)
  Receive Date: 20170511
  Receipt Date: 20170623
  Transmission Date: 20170830
  Serious: Yes (Hospitalization)
  Sender: FDA-Public Use
  Company Number: US-LUNDBECK-DKLU2030563

PATIENT
  Age: 82 Year
  Sex: Male

DRUGS (2)
  1. NORTHERA [Suspect]
     Active Substance: DROXIDOPA
     Indication: AUTONOMIC NEUROPATHY
     Route: 048
  2. NORTHERA [Suspect]
     Active Substance: DROXIDOPA
     Indication: ORTHOSTATIC HYPOTENSION
     Route: 048
     Dates: start: 20160731

REACTIONS (13)
  - Dizziness [Unknown]
  - Joint injury [Unknown]
  - Dyspnoea [Unknown]
  - Hypotension [Unknown]
  - Loss of consciousness [Unknown]
  - Gout [Unknown]
  - Fall [Unknown]
  - Head injury [Unknown]
  - Exercise tolerance decreased [Unknown]
  - Atrial fibrillation [Unknown]
  - Syncope [Unknown]
  - Fatigue [Unknown]
  - Drug dose omission [Unknown]

NARRATIVE: CASE EVENT DATE: 20161021
